FAERS Safety Report 5912356-9 (Version None)
Quarter: 2008Q4

REPORT INFORMATION
  Report Type: 
  Country: None (occurrence: None)
  Receive Date: 20081006
  Receipt Date: 20080918
  Transmission Date: 20090506
  Serious: Yes (Other)
  Sender: FDA-Public Use
  Company Number: ADE2008-0312

PATIENT
  Age: 73 Year
  Sex: Female

DRUGS (5)
  1. AMOXICILLIN [Suspect]
     Dosage: 1G - BID - IV
     Route: 042
     Dates: start: 20080818
  2. GLICLAZIDE [Concomitant]
  3. METFORMIN [Concomitant]
  4. PREDNISOLONE [Concomitant]
  5. SIMVASTATIN [Concomitant]

REACTIONS (3)
  - FLUSHING [None]
  - HYPOTENSION [None]
  - SINUS TACHYCARDIA [None]
